FAERS Safety Report 6497922-7 (Version None)
Quarter: 2009Q4

REPORT INFORMATION
  Report Type: 
  Country: None (occurrence: None)
  Receive Date: 20091125
  Receipt Date: 20090105
  Transmission Date: 20100525
  Serious: Yes (Other)
  Sender: FDA-Public Use
  Company Number: 2009BH000194

PATIENT
  Age: 71 Year
  Sex: Male
  Weight: 111 kg

DRUGS (21)
  1. DIANEAL [Suspect]
     Indication: PERITONEAL DIALYSIS
     Dosage: 12 L; EVERY DAY;IP
     Route: 033
     Dates: start: 20060725
  2. EXTRANEAL [Suspect]
     Indication: PERITONEAL DIALYSIS
     Dosage: 2 L;EVERY DAY;IP
     Route: 033
     Dates: start: 20060728
  3. HECTOROL [Concomitant]
  4. EPOGEN [Concomitant]
  5. RENVELA [Concomitant]
  6. CARAFATE [Concomitant]
  7. COREG [Concomitant]
  8. ASPIRIN [Concomitant]
  9. LASIX [Concomitant]
  10. SYNTHROID [Concomitant]
  11. VITAMIN B-12 [Concomitant]
  12. MAGNESIUM OXIDE [Concomitant]
  13. VITAMIN C [Concomitant]
  14. LORTAB [Concomitant]
  15. INSULIN [Concomitant]
  16. RENAPLEX [Concomitant]
  17. ZOFRAN [Concomitant]
  18. LONOX [Concomitant]
  19. GABAPENTIN [Concomitant]
  20. PRILOSEC [Concomitant]
  21. REGLAN [Concomitant]

REACTIONS (3)
  - NAUSEA [None]
  - PERITONITIS BACTERIAL [None]
  - VOMITING [None]
